FAERS Safety Report 8623518-4 (Version None)
Quarter: 2012Q3

REPORT INFORMATION
  Report Type: 
  Country: None (occurrence: None)
  Receive Date: 20120824
  Receipt Date: 20120824
  Transmission Date: 20120928
  Serious: Yes (Hospitalization, Other)
  Sender: FDA-Public Use
  Company Number: None

PATIENT
  Age: 53 Year
  Sex: Female
  Weight: 58.9676 kg

DRUGS (3)
  1. AVELOX [Suspect]
     Indication: PNEUMONIA
     Dosage: 400 MG I.V. QD ; 800 MG 24 HRS 6 MO
  2. AVELOX [Suspect]
     Indication: PNEUMONIA
     Dosage: 400 MG I.V. QD ; 800 MG 24 HRS 6 MO
  3. AZITHROMYCIN [Concomitant]

REACTIONS (4)
  - FLUID RETENTION [None]
  - PANCYTOPENIA [None]
  - VENTRICULAR EXTRASYSTOLES [None]
  - APNOEA [None]
